FAERS Safety Report 19983856 (Version 4)
Quarter: 2021Q4

REPORT INFORMATION
  Report Type: Spontaneous
  Country: EG (occurrence: EG)
  Receive Date: 20211022
  Receipt Date: 20211203
  Transmission Date: 20220303
  Serious: Yes (Death, Hospitalization, Other)
  Sender: FDA-Public Use
  Company Number: EG-SA-SAC20211021001038

PATIENT
  Age: 1 Year
  Sex: Male
  Weight: 10 kg

DRUGS (1)
  1. CEREZYME [Suspect]
     Active Substance: IMIGLUCERASE
     Indication: Gaucher^s disease type III
     Dosage: 60 IU/KG, QOW
     Route: 041
     Dates: start: 20201007, end: 20211005

REACTIONS (8)
  - Respiratory failure [Fatal]
  - Status asthmaticus [Fatal]
  - Pneumonia bacterial [Fatal]
  - Tachypnoea [Fatal]
  - Pyrexia [Fatal]
  - Respiratory distress [Fatal]
  - Feeding intolerance [Fatal]
  - Hospitalisation [Unknown]

NARRATIVE: CASE EVENT DATE: 20211005
